FAERS Safety Report 9684833 (Version 2)
Quarter: 2013Q4

REPORT INFORMATION
  Report Type: Report from Study
  Country: VE (occurrence: VE)
  Receive Date: 20131112
  Receipt Date: 20131112
  Transmission Date: 20140711
  Serious: Yes (Hospitalization)
  Sender: FDA-Public Use
  Company Number: VE-ABBVIE-13P-178-1035335-00

PATIENT
  Sex: Male

DRUGS (2)
  1. HUMIRA [Suspect]
     Indication: PSORIASIS
     Route: 058
     Dates: end: 2012
  2. HUMIRA [Suspect]
     Route: 058
     Dates: start: 201307

REACTIONS (1)
  - Post procedural haemorrhage [Recovered/Resolved]
